FAERS Safety Report 7926840-X (Version None)
Quarter: 2011Q4

REPORT INFORMATION
  Report Type: 
  Country: None (occurrence: None)
  Receive Date: 20111118
  Receipt Date: 20111117
  Transmission Date: 20120403
  Serious: Yes (Other)
  Sender: FDA-Public Use
  Company Number: JP-PFIZER INC-2011281600

PATIENT
  Age: 74 Year
  Sex: Male

DRUGS (1)
  1. MIGLITOL [Suspect]
     Dosage: 150 MG, UNK
     Route: 048
     Dates: start: 20100112, end: 20110501

REACTIONS (1)
  - URINARY RETENTION [None]
